FAERS Safety Report 5959167-6 (Version None)
Quarter: 2008Q4

REPORT INFORMATION
  Report Type: 
  Country: None (occurrence: None)
  Receive Date: 20081120
  Receipt Date: 20080416
  Transmission Date: 20090506
  Serious: No
  Sender: FDA-Public Use
  Company Number: A0723191A

PATIENT
  Age: 6 Year
  Sex: Female

DRUGS (3)
  1. WELLBUTRIN [Suspect]
     Route: 048
  2. WELLBUTRIN [Suspect]
     Route: 048
  3. VYVANSE [Concomitant]

REACTIONS (4)
  - AGGRESSION [None]
  - DRUG ADMINISTRATION ERROR [None]
  - DRUG INEFFECTIVE [None]
  - MOOD SWINGS [None]
